FAERS Safety Report 5061094-6 (Version None)
Quarter: 2006Q3

REPORT INFORMATION
  Report Type: 
  Country: None (occurrence: None)
  Receive Date: 20060720
  Receipt Date: 20060711
  Transmission Date: 20061208
  Serious: Yes (Death)
  Sender: FDA-Public Use
  Company Number: 163-21880-06040307

PATIENT
  Age: 74 Year
  Sex: Male

DRUGS (19)
  1. REVLIMID [Suspect]
     Indication: MYELOFIBROSIS
     Dosage: 10 MG, 2 IN 1 D, ORAL
     Route: 048
     Dates: start: 20060222, end: 20060522
  2. REVLIMID [Suspect]
     Indication: MYELOID METAPLASIA
     Dosage: 10 MG, 2 IN 1 D, ORAL
     Route: 048
     Dates: start: 20060222, end: 20060522
  3. PREDNISONE [Concomitant]
  4. ADVAIR DISKUS 100/50 [Concomitant]
  5. COMBIVENT [Concomitant]
  6. IPRATROPIUM BROMIDE [Concomitant]
  7. SOLTALOL HCL (SOTALOL HYDROCHLORIDE) [Concomitant]
  8. FOLIC ACID [Concomitant]
  9. OMEPRASONE (OMEPRAZOLE) [Concomitant]
  10. FLUOXETINE HCL (FLUOXETINE HYDROCHLORIDE) [Concomitant]
  11. LORAZEPAM [Concomitant]
  12. EXJADE [Concomitant]
  13. MULTIVITAMIN WITH IRON [Concomitant]
  14. ASCORBIC ACID [Concomitant]
  15. CALCIUM GLUCONATE [Concomitant]
  16. VITAMIN D [Concomitant]
  17. GLUCOSAMINE [Concomitant]
  18. CHONDROTIN SULFATE (CHONDROITIN SULFATE) [Concomitant]
  19. CLARITIN [Concomitant]

REACTIONS (3)
  - DISEASE PROGRESSION [None]
  - NEUTROPENIA [None]
  - THROMBOCYTOPENIA [None]
